FAERS Safety Report 10145104 (Version 3)
Quarter: 2015Q1

REPORT INFORMATION
  Report Type: Report from Study
  Country: US (occurrence: US)
  Receive Date: 20140501
  Receipt Date: 20150314
  Transmission Date: 20150720
  Serious: Yes (Other)
  Sender: FDA-Public Use
  Company Number: US-BIOGENIDEC-2014BI040113

PATIENT
  Age: 42 Year
  Sex: Female

DRUGS (1)
  1. AVONEX [Suspect]
     Active Substance: INTERFERON BETA-1A
     Indication: MULTIPLE SCLEROSIS
     Route: 030
     Dates: start: 19960902, end: 20140506

REACTIONS (3)
  - Malaise [Recovered/Resolved]
  - Drug intolerance [Recovered/Resolved]
  - Primary mediastinal large B-cell lymphoma [Recovered/Resolved]

NARRATIVE: CASE EVENT DATE: 19960902
